FAERS Safety Report 13700455 (Version 1)
Quarter: 2017Q2

REPORT INFORMATION
  Report Type: Spontaneous
  Country: SE (occurrence: SE)
  Receive Date: 20170629
  Receipt Date: 20170629
  Transmission Date: 20170830
  Serious: Yes (Disabling, Other)
  Sender: FDA-Public Use
  Company Number: SE-TEVA-779120ACC

PATIENT
  Age: 78 Year
  Sex: Female

DRUGS (1)
  1. ALENAT VECKOTABLETT  70 MG TABLETT [Suspect]
     Active Substance: ALENDRONATE SODIUM
     Indication: OSTEOPOROSIS
     Dates: start: 2014

REACTIONS (2)
  - Dysuria [Unknown]
  - Enterovesical fistula [Unknown]

NARRATIVE: CASE EVENT DATE: 201612
